FAERS Safety Report 8738956 (Version 2)
Quarter: 2012Q4

REPORT INFORMATION
  Report Type: 
  Country: GB (occurrence: GB)
  Receive Date: 20120823
  Receipt Date: 20121220
  Transmission Date: 20130627
  Serious: Yes (Disabling, Other)
  Sender: FDA-Public Use
  Company Number: GB-RANBAXY-2012R1-59082

PATIENT
  Age: 32 Year
  Sex: Female

DRUGS (7)
  1. CO-DYDRAMOL [Suspect]
     Indication: POSTOPERATIVE ANALGESIA
     Dosage: 1 DF, qid
     Route: 048
     Dates: start: 20120725, end: 20120730
  2. DICLOFENAC [Suspect]
     Indication: POSTOPERATIVE ANALGESIA
     Dosage: 50 mg, tid
     Route: 048
     Dates: start: 20120725
  3. CO-AMOXICLAV [Suspect]
     Indication: ANTIBIOTIC PROPHYLAXIS
     Dosage: 1 DF, tid
     Route: 048
     Dates: start: 20120725
  4. FERROUS SULPHATE [Concomitant]
     Indication: ANAEMIA
     Dosage: UNK
     Route: 065
  5. FLUCLOXACILLIN [Concomitant]
     Indication: ANTIBIOTIC PROPHYLAXIS
     Dosage: UNK
     Route: 065
  6. FLUCLOXACILLIN [Concomitant]
     Indication: POSTOPERATIVE WOUND COMPLICATION
  7. PARACETAMOL [Concomitant]
     Indication: POSTOPERATIVE ANALGESIA
     Dosage: UNK
     Route: 065

REACTIONS (3)
  - Constipation [Unknown]
  - Defaecation urgency [Unknown]
  - Pain [Unknown]
